FAERS Safety Report 20237333 (Version 1)
Quarter: 2021Q4

REPORT INFORMATION
  Report Type: Spontaneous
  Country: US (occurrence: None)
  Receive Date: 20211227
  Receipt Date: 20211227
  Transmission Date: 20220304
  Serious: No
  Sender: FDA-Public Use
  Company Number: None

PATIENT
  Age: 48 Year
  Sex: Female
  Weight: 112.5 kg

DRUGS (2)
  1. NEUTROGENA BEACH DEFENSE WATER PLUS SUN BARRIER SUNSCREEN BROAD SPECTR [Suspect]
     Active Substance: AVOBENZONE\HOMOSALATE\OCTISALATE\OCTOCRYLENE\OXYBENZONE
     Indication: Prophylaxis against solar radiation
     Dosage: OTHER STRENGTH : OZ;?OTHER QUANTITY : 2 SPRAY(S);?OTHER FREQUENCY : EVERY 2 HRS;?
     Route: 061
     Dates: start: 20210703, end: 20210710
  2. NEUTROGENA ULTRA SHEER [Suspect]
     Active Substance: AVOBENZONE\HOMOSALATE\OCTISALATE\OCTOCRYLENE\OXYBENZONE
     Dosage: OTHER STRENGTH : OZ;?OTHER QUANTITY : 2 OUNCE(S);?OTHER FREQUENCY : EVERY 2 HOURS;?
     Route: 061
     Dates: start: 20210703, end: 20210710

REACTIONS (1)
  - Chemical burn [None]

NARRATIVE: CASE EVENT DATE: 20210703
